FAERS Safety Report 9063136 (Version 5)
Quarter: 2013Q2

REPORT INFORMATION
  Report Type: Spontaneous
  Country: JP (occurrence: JP)
  Receive Date: 20130213
  Receipt Date: 20130411
  Transmission Date: 20140414
  Serious: Yes (Hospitalization)
  Sender: FDA-Public Use
  Company Number: JP-JNJFOC-20130202134

PATIENT
  Age: 80 Year
  Sex: Female

DRUGS (3)
  1. TRAMCET [Suspect]
     Indication: PAIN
     Dosage: 3 PER 1 DAY
     Route: 048
     Dates: start: 201301, end: 20130128
  2. LYRICA [Concomitant]
     Indication: PAIN
     Dosage: 1 PER 1 DAY
     Route: 048
  3. FORTEO [Concomitant]
     Indication: OSTEOPOROSIS
     Route: 058

REACTIONS (3)
  - Dysarthria [Recovered/Resolved]
  - Restlessness [Recovered/Resolved]
  - Dyskinesia [Recovered/Resolved]
